FAERS Safety Report 16347179 (Version 1)
Quarter: 2019Q2

REPORT INFORMATION
  Report Type: Spontaneous
  Country: US (occurrence: US)
  Receive Date: 20190417
  Receipt Date: 20190417
  Transmission Date: 20190711
  Serious: Yes (Hospitalization)
  Sender: FDA-Public Use
  Company Number: None

PATIENT
  Age: 72 Year
  Sex: Male

DRUGS (1)
  1. CARBIDOPA/LEVODOPA [Suspect]
     Active Substance: CARBIDOPA\LEVODOPA
     Indication: PARKINSON^S DISEASE
     Route: 048
     Dates: start: 20190117

REACTIONS (5)
  - Delusion [None]
  - Hallucination [None]
  - Agitation [None]
  - Condition aggravated [None]
  - Confusional state [None]

NARRATIVE: CASE EVENT DATE: 20190131
